FAERS Safety Report 16699337 (Version 1)
Quarter: 2019Q3

REPORT INFORMATION
  Report Type: Spontaneous
  Country: DE (occurrence: DE)
  Receive Date: 20190813
  Receipt Date: 20190813
  Transmission Date: 20191004
  Serious: Yes (Hospitalization)
  Sender: FDA-Public Use
  Company Number: DE-SA-2019SA125156

PATIENT
  Sex: Male
  Weight: 85 kg

DRUGS (6)
  1. METOPROLOL. [Concomitant]
     Active Substance: METOPROLOL
     Indication: BLOOD PRESSURE MEASUREMENT
     Dosage: 1 DF, QD
     Dates: start: 2017
  2. AUBAGIO [Suspect]
     Active Substance: TERIFLUNOMIDE
     Indication: MULTIPLE SCLEROSIS
     Dosage: 1 DF, QD
     Route: 048
  3. MIRTAZAPINE. [Concomitant]
     Active Substance: MIRTAZAPINE
     Dosage: UNK UNK, HS
  4. ASA [Concomitant]
     Active Substance: ASPIRIN
     Indication: MYOCARDIAL INFARCTION
     Dosage: 1 DF, QD
     Dates: start: 2017
  5. ROSU [Concomitant]
     Indication: CARDIAC DISORDER
     Dosage: 1 DF, QD
     Dates: start: 2017
  6. EMSELEX [DARIFENACIN] [Concomitant]
     Indication: BLADDER DISORDER
     Dosage: 1 DF, QD

REACTIONS (12)
  - Rash [Not Recovered/Not Resolved]
  - Skin reaction [Not Recovered/Not Resolved]
  - Skin lesion [Recovering/Resolving]
  - Nodule [Unknown]
  - Urticaria [Unknown]
  - Skin disorder [Unknown]
  - Papule [Unknown]
  - Rash pustular [Not Recovered/Not Resolved]
  - Eczema [Unknown]
  - Vasculitis [Unknown]
  - Pruritus generalised [Not Recovered/Not Resolved]
  - Scab [Unknown]

NARRATIVE: CASE EVENT DATE: 201702
